FAERS Safety Report 15883720 (Version 1)
Quarter: 2019Q1

REPORT INFORMATION
  Report Type: Spontaneous
  Country: FR (occurrence: FR)
  Receive Date: 20190129
  Receipt Date: 20190129
  Transmission Date: 20190417
  Serious: Yes (Hospitalization)
  Sender: FDA-Public Use
  Company Number: FR-TEVA-2019-FR-1002842

PATIENT
  Age: 61 Year
  Sex: Female
  Weight: 95 kg

DRUGS (12)
  1. COUMADINE [Concomitant]
     Active Substance: WARFARIN SODIUM
  2. METOPROLOL (TARTRATE DE) [Concomitant]
     Active Substance: METOPROLOL TARTRATE
  3. SIMVASTATINE [Suspect]
     Active Substance: SIMVASTATIN
     Route: 065
  4. VALSARTAN. [Suspect]
     Active Substance: VALSARTAN
     Indication: HYPERTENSION
     Dosage: 40 MILLIGRAM DAILY;
     Route: 048
     Dates: end: 20180602
  5. LASILIX SPECIAL 500 MG, COMPRIM? S?CABLE [Suspect]
     Active Substance: FUROSEMIDE
     Indication: CARDIAC FAILURE
     Dosage: 1.5 DOSAGE FORMS DAILY;
     Route: 048
     Dates: end: 20180602
  6. ALLOPURINOL. [Concomitant]
     Active Substance: ALLOPURINOL
  7. HUMALOG [Concomitant]
     Active Substance: INSULIN LISPRO
  8. KARDEGIC [Concomitant]
     Active Substance: ASPIRIN DL-LYSINE
  9. UMULINE [Concomitant]
     Active Substance: INSULIN HUMAN
  10. PANTOPRAZOLE [Concomitant]
     Active Substance: PANTOPRAZOLE
  11. IKOREL [Concomitant]
     Active Substance: NICORANDIL
  12. SYMBICORT [Concomitant]
     Active Substance: BUDESONIDE\FORMOTEROL FUMARATE DIHYDRATE

REACTIONS (1)
  - Acute kidney injury [Recovered/Resolved]

NARRATIVE: CASE EVENT DATE: 20180602
